FAERS Safety Report 8335829-0 (Version None)
Quarter: 2012Q2

REPORT INFORMATION
  Report Type: 
  Country: None (occurrence: None)
  Receive Date: 20120502
  Receipt Date: 20120502
  Transmission Date: 20120825
  Serious: No
  Sender: FDA-Public Use
  Company Number: None

PATIENT

DRUGS (1)
  1. APLISOL [Suspect]
     Indication: TUBERCULOSIS
     Dosage: 0.1ML ONCE INJ.
     Dates: start: 20120426

REACTIONS (3)
  - RASH ERYTHEMATOUS [None]
  - INJECTION SITE RASH [None]
  - PRODUCT QUALITY ISSUE [None]
